FAERS Safety Report 6721487-5 (Version None)
Quarter: 2010Q2

REPORT INFORMATION
  Report Type: 
  Country: None (occurrence: None)
  Receive Date: 20100510
  Receipt Date: 20100503
  Transmission Date: 20101027
  Serious: Yes (Hospitalization)
  Sender: FDA-Public Use
  Company Number: 1000012475

PATIENT
  Age: 58 Year
  Sex: Female

DRUGS (8)
  1. CELEXA [Suspect]
     Indication: DEPRESSION
     Dosage: 20 MG (20 MG,1 IN 1 D),ORAL
     Route: 048
     Dates: start: 20091203, end: 20091221
  2. CELEXA [Suspect]
     Indication: DEPRESSION
     Dosage: 30 MG (30 MG,1 IN 1 D),ORAL
     Route: 048
     Dates: start: 20091222, end: 20091201
  3. CELEXA [Suspect]
     Indication: DEPRESSION
     Dosage: ORAL
     Route: 048
     Dates: start: 20100101, end: 20100124
  4. TENORMIN [Concomitant]
  5. MAGNESIUM (400 MILLIGRAM, TABLETS) [Concomitant]
  6. POTASSIUM (10 MILLIEQUIVALENTS, TABLETS) [Concomitant]
  7. VITAMIN B12 (2000 MILLIGRAM, TABLETS) [Concomitant]
  8. HCTZ (TABLETS) [Concomitant]

REACTIONS (13)
  - ABDOMINAL PAIN UPPER [None]
  - ASTHENIA [None]
  - DIZZINESS [None]
  - FEELING COLD [None]
  - GASTROOESOPHAGEAL HETEROTOPIA [None]
  - HYPERVENTILATION [None]
  - IMPAIRED GASTRIC EMPTYING [None]
  - LONG QT SYNDROME [None]
  - NAUSEA [None]
  - PULMONARY ARTERIAL WEDGE PRESSURE INCREASED [None]
  - RETCHING [None]
  - VENTRICULAR TACHYCARDIA [None]
  - VOMITING [None]
